FAERS Safety Report 7023432-4 (Version None)
Quarter: 2010Q3

REPORT INFORMATION
  Report Type: 
  Country: None (occurrence: None)
  Receive Date: 20100930
  Receipt Date: 20100920
  Transmission Date: 20110219
  Serious: Yes (Hospitalization)
  Sender: FDA-Public Use
  Company Number: NL-WATSON-2010-12856

PATIENT
  Age: 78 Year
  Sex: Female

DRUGS (2)
  1. MICROZIDE [Suspect]
     Indication: HYPERTENSION
     Dosage: UNK, FOR MANY YEARS
  2. NITROFURANTOIN [Suspect]
     Indication: URINARY TRACT INFECTION
     Dosage: UNK

REACTIONS (11)
  - BLOOD URINE PRESENT [None]
  - CONFUSIONAL STATE [None]
  - DELIRIUM [None]
  - DEPRESSED LEVEL OF CONSCIOUSNESS [None]
  - DIARRHOEA [None]
  - HYPOAESTHESIA [None]
  - HYPOKALAEMIA [None]
  - HYPONATRAEMIA [None]
  - OEDEMA PERIPHERAL [None]
  - TREMOR [None]
  - VOMITING [None]
